FAERS Safety Report 23593355 (Version 2)
Quarter: 2024Q1

REPORT INFORMATION
  Report Type: Spontaneous
  Country: JP (occurrence: JP)
  Receive Date: 20240304
  Receipt Date: 20240304
  Transmission Date: 20240410
  Serious: No
  Sender: FDA-Public Use
  Company Number: JP-WW-2024-JP-014714

PATIENT
  Age: 77 Year
  Sex: Male

DRUGS (2)
  1. DUTASTERIDE [Suspect]
     Active Substance: DUTASTERIDE
     Route: 065
  2. DUTASTERIDE [Suspect]
     Active Substance: DUTASTERIDE
     Route: 065

REACTIONS (3)
  - Nipple pain [Recovering/Resolving]
  - Inappropriate schedule of product administration [Unknown]
  - Off label use [Unknown]

NARRATIVE: CASE EVENT DATE: 20240101
